FAERS Safety Report 9849242 (Version 1)
Quarter: 2014Q1

REPORT INFORMATION
  Report Type: Report from Study
  Country: BR (occurrence: BR)
  Receive Date: 20140128
  Receipt Date: 20140128
  Transmission Date: 20141002
  Serious: Yes (Death)
  Sender: FDA-Public Use
  Company Number: PHHY2014BR009164

PATIENT
  Sex: Female
  Weight: 42 kg

DRUGS (5)
  1. EXELON [Suspect]
     Indication: DEMENTIA ALZHEIMER^S TYPE
     Dosage: 2 DF, QD
     Dates: start: 201401
  2. PROLOPA [Concomitant]
     Dosage: UNK UKN, UNK
     Dates: start: 199905
  3. PRINIVIL [Concomitant]
     Dosage: UNK UKN, UNK
  4. OMEPRAZOLE [Concomitant]
     Dosage: UNK UKN, UNK
     Dates: start: 199905
  5. TICLID [Concomitant]
     Dosage: UNK UKN, UNK
     Dates: start: 199905

REACTIONS (3)
  - Dementia Alzheimer^s type [Fatal]
  - Cardiac failure [Fatal]
  - Cerebrovascular accident [Fatal]
